FAERS Safety Report 23303538 (Version 1)
Quarter: 2023Q4

REPORT INFORMATION
  Report Type: Spontaneous
  Country: US (occurrence: None)
  Receive Date: 20231215
  Receipt Date: 20231215
  Transmission Date: 20240109
  Serious: Yes (Life-Threatening, Disabling, Other)
  Sender: FDA-Public Use
  Company Number: None

PATIENT
  Age: 65 Year
  Sex: Male
  Weight: 58.5 kg

DRUGS (1)
  1. MORPHINE SULFATE [Suspect]
     Active Substance: MORPHINE SULFATE
     Indication: Myelomalacia
     Dosage: OTHER QUANTITY : 56 TABLET(S);?FREQUENCY : EVERY 12 HOURS;?
     Route: 048
     Dates: start: 20231213, end: 20231215

REACTIONS (4)
  - Oropharyngeal pain [None]
  - Headache [None]
  - Chest pain [None]
  - Drug withdrawal syndrome [None]

NARRATIVE: CASE EVENT DATE: 20231213
